FAERS Safety Report 19012839 (Version 3)
Quarter: 2021Q1

REPORT INFORMATION
  Report Type: Spontaneous
  Country: QA (occurrence: QA)
  Receive Date: 20210315
  Receipt Date: 20210330
  Transmission Date: 20210420
  Serious: Yes (Death, Life-Threatening, Hospitalization, Other)
  Sender: FDA-Public Use
  Company Number: QA-PFIZER INC-2021269867

PATIENT
  Age: 60 Year
  Sex: Male
  Weight: 72 kg

DRUGS (5)
  1. HYDROCORTISONE SODIUM SUCCINATE [Suspect]
     Active Substance: HYDROCORTISONE SODIUM SUCCINATE
     Indication: COVID-19
     Dosage: UNK
  2. TOCILIZUMAB. [Suspect]
     Active Substance: TOCILIZUMAB
     Dosage: 600 MG, SINGLE
  3. METHYLPREDNISOLONE. [Suspect]
     Active Substance: METHYLPREDNISOLONE
     Indication: COVID-19
     Dosage: UNK
  4. TOCILIZUMAB. [Suspect]
     Active Substance: TOCILIZUMAB
     Dosage: 600 MG, SINGLE
  5. TOCILIZUMAB. [Suspect]
     Active Substance: TOCILIZUMAB
     Dosage: 400 MG, SINGLE

REACTIONS (6)
  - Candida infection [Recovered/Resolved]
  - Acute kidney injury [Not Recovered/Not Resolved]
  - Off label use [Unknown]
  - Gastrointestinal haemorrhage [Recovered/Resolved]
  - Cryptococcosis [Fatal]
  - Sepsis [Fatal]
